FAERS Safety Report 9803569 (Version 1)
Quarter: 2014Q1

REPORT INFORMATION
  Report Type: Spontaneous
  Country: US (occurrence: US)
  Receive Date: 20140108
  Receipt Date: 20140108
  Transmission Date: 20141002
  Serious: No
  Sender: FDA-Public Use
  Company Number: US-GLAXOSMITHKLINE-A1008389A

PATIENT
  Age: 60 Year
  Sex: Male

DRUGS (9)
  1. LOVAZA [Suspect]
     Indication: BLOOD TRIGLYCERIDES INCREASED
     Dosage: 2CAP TWICE PER DAY
     Route: 048
     Dates: start: 2010
  2. METFORMIN [Concomitant]
  3. ALTACE [Concomitant]
  4. WELCHOL [Concomitant]
  5. INSULIN INJECTIONS [Concomitant]
  6. ANTARA [Concomitant]
  7. VITAMIN [Concomitant]
  8. ASPIRIN LOW DOSE [Concomitant]
  9. GLUCOSAMINE [Concomitant]

REACTIONS (5)
  - Nausea [Unknown]
  - Product odour abnormal [Unknown]
  - Product quality issue [Unknown]
  - Product quality issue [Unknown]
  - Drug intolerance [Unknown]
